FAERS Safety Report 22628875 (Version 1)
Quarter: 2023Q2

REPORT INFORMATION
  Report Type: Spontaneous
  Country: KR (occurrence: KR)
  Receive Date: 20230622
  Receipt Date: 20230622
  Transmission Date: 20230721
  Serious: Yes (Other)
  Sender: FDA-Public Use
  Company Number: KR-MLMSERVICE-20230608-4333715-1

PATIENT
  Age: 35 Year
  Sex: Male

DRUGS (3)
  1. MYCOPHENOLIC ACID [Suspect]
     Active Substance: MYCOPHENOLIC ACID
     Indication: Pyoderma gangrenosum
  2. COLCHICINE [Concomitant]
     Active Substance: COLCHICINE
     Indication: Pyoderma gangrenosum
  3. DAPSONE [Concomitant]
     Active Substance: DAPSONE
     Indication: Pyoderma gangrenosum

REACTIONS (3)
  - Stenotrophomonas infection [Recovering/Resolving]
  - Corynebacterium infection [Recovering/Resolving]
  - Superinfection [Recovering/Resolving]
